FAERS Safety Report 4887746-6 (Version None)
Quarter: 2006Q1

REPORT INFORMATION
  Report Type: 
  Country: None (occurrence: None)
  Receive Date: 20060123
  Receipt Date: 20060111
  Transmission Date: 20060701
  Serious: Yes (Other)
  Sender: FDA-Public Use
  Company Number: US-AVENTIS-200610360US

PATIENT
  Sex: Female

DRUGS (3)
  1. KETEK [Suspect]
     Indication: SINUSITIS
     Route: 048
     Dates: start: 20060106, end: 20060106
  2. TOPROL-XL [Concomitant]
     Indication: HYPERTENSION
     Dosage: DOSE: UNKNOWN
  3. LACTOBACILLUS [Concomitant]
     Dosage: DOSE: UNKNOWN

REACTIONS (4)
  - BLOOD PRESSURE INCREASED [None]
  - DIZZINESS [None]
  - MUSCLE TIGHTNESS [None]
  - MUSCULOSKELETAL DISCOMFORT [None]
